FAERS Safety Report 8351368-5 (Version None)
Quarter: 2012Q2

REPORT INFORMATION
  Report Type: 
  Country: None (occurrence: None)
  Receive Date: 20120510
  Receipt Date: 20120502
  Transmission Date: 20120825
  Serious: Yes (Hospitalization, Other)
  Sender: FDA-Public Use
  Company Number: PR-ABBOTT-12P-131-0898079-00

PATIENT
  Sex: Male
  Weight: 106.24 kg

DRUGS (3)
  1. HUMIRA [Suspect]
     Indication: PSORIASIS
     Route: 058
     Dates: start: 20110501, end: 20120125
  2. ONGLYZA [Concomitant]
     Indication: DIABETES MELLITUS
     Route: 048
     Dates: start: 20100101
  3. HUMIRA [Suspect]
     Indication: PSORIASIS
     Route: 058
     Dates: end: 20120502

REACTIONS (4)
  - TENDON INJURY [None]
  - MENISCUS LESION [None]
  - BURSITIS [None]
  - CELLULITIS [None]
